FAERS Safety Report 9852298 (Version 3)
Quarter: 2014Q1

REPORT INFORMATION
  Report Type: Spontaneous
  Country: JP (occurrence: JP)
  Receive Date: 20140129
  Receipt Date: 20140304
  Transmission Date: 20141002
  Serious: Yes (Hospitalization)
  Sender: FDA-Public Use
  Company Number: JP-NOVOPROD-398503

PATIENT
  Age: 13 Year
  Sex: Female

DRUGS (2)
  1. NORDITROPIN FLEXPROCHU 6.7 MG/ML [Suspect]
     Indication: TURNER^S SYNDROME
     Dosage: 2.10 MG, QD
     Route: 058
  2. PREMARIN [Concomitant]
     Indication: HORMONE REPLACEMENT THERAPY
     Dosage: UNK
     Route: 048
     Dates: start: 20130325

REACTIONS (2)
  - Herpes zoster [Recovered/Resolved]
  - Product physical issue [Unknown]
